FAERS Safety Report 17129143 (Version 1)
Quarter: 2019Q4

REPORT INFORMATION
  Report Type: Spontaneous
  Country: US (occurrence: US)
  Receive Date: 20191208
  Receipt Date: 20191208
  Transmission Date: 20200122
  Serious: Yes (Hospitalization, Disabling)
  Sender: FDA-Public Use
  Company Number: None

PATIENT
  Age: 59 Year
  Sex: Female
  Weight: 56.25 kg

DRUGS (5)
  1. IBANDRONATE [Suspect]
     Active Substance: IBANDRONATE SODIUM
     Indication: OSTEOPOROSIS
     Dates: start: 20120213, end: 20190817
  2. CALCIUM [Concomitant]
     Active Substance: CALCIUM
  3. MVI [Concomitant]
     Active Substance: VITAMINS
  4. VITAMIN C [Concomitant]
     Active Substance: ASCORBIC ACID
  5. VIT D [Concomitant]
     Active Substance: VITAMIN D NOS

REACTIONS (2)
  - Osteogenesis imperfecta [None]
  - Femur fracture [None]

NARRATIVE: CASE EVENT DATE: 20190817
